FAERS Safety Report 15082809 (Version 4)
Quarter: 2019Q1

REPORT INFORMATION
  Report Type: Spontaneous
  Country: US (occurrence: US)
  Receive Date: 20180628
  Receipt Date: 20190318
  Transmission Date: 20190417
  Serious: Yes (Other)
  Sender: FDA-Public Use
  Company Number: US-PFIZER INC-2018261005

PATIENT
  Age: 53 Year
  Sex: Female

DRUGS (1)
  1. XELJANZ XR [Suspect]
     Active Substance: TOFACITINIB CITRATE
     Indication: RHEUMATOID ARTHRITIS
     Dosage: 11 MG, DAILY
     Route: 048
     Dates: start: 20180501

REACTIONS (6)
  - Systemic lupus erythematosus [Unknown]
  - Condition aggravated [Unknown]
  - Glossodynia [Unknown]
  - Arthralgia [Unknown]
  - Product dose omission [Unknown]
  - Tendonitis [Unknown]

NARRATIVE: CASE EVENT DATE: 20180618
